FAERS Safety Report 25373251 (Version 1)
Quarter: 2025Q2

REPORT INFORMATION
  Report Type: Spontaneous
  Country: FR (occurrence: FR)
  Receive Date: 20250529
  Receipt Date: 20250529
  Transmission Date: 20250717
  Serious: Yes (Other)
  Sender: B BRAUN
  Company Number: FR-B.Braun Medical Inc.-2177642

PATIENT
  Age: 22 Year
  Sex: Female

DRUGS (5)
  1. ACETAMINOPHEN [Suspect]
     Active Substance: ACETAMINOPHEN
  2. NITROUS OXIDE [Suspect]
     Active Substance: NITROUS OXIDE
  3. SERTRALINE [Suspect]
     Active Substance: SERTRALINE HYDROCHLORIDE
  4. ALPRAZOLAM [Suspect]
     Active Substance: ALPRAZOLAM
  5. ALCOHOL [Suspect]
     Active Substance: ALCOHOL

REACTIONS (2)
  - Substance abuser [Unknown]
  - Suicide attempt [Recovered/Resolved]
